FAERS Safety Report 4908964-4 (Version None)
Quarter: 2006Q1

REPORT INFORMATION
  Report Type: 
  Country: None (occurrence: None)
  Receive Date: 20060213
  Receipt Date: 20060105
  Transmission Date: 20060701
  Serious: Yes (Hospitalization, Other)
  Sender: FDA-Public Use
  Company Number: PHMT2006CA00465

PATIENT
  Age: 85 Year
  Sex: Female
  Weight: 63.492 kg

DRUGS (8)
  1. COMTAN [Suspect]
     Dosage: 200 MG, TID
     Route: 048
     Dates: start: 20051025, end: 20051220
  2. SINEMET [Concomitant]
     Dosage: 100/25 TID
  3. PRAMIPEXOLE DIHYDROCHLORIDE [Concomitant]
     Dosage: 1 MG, TID
  4. LEVOTHYROXINE SODIUM [Concomitant]
     Dosage: 0.1 MG, QD
  5. LOSARTAN POTASSIUM [Concomitant]
     Dosage: 25 MG, QD
  6. FUROSEMIDE [Concomitant]
     Dosage: 40 MG, QD
  7. OXAZEPAM [Concomitant]
     Dosage: 5 MG, QHS
  8. SERTRALINE [Concomitant]
     Dosage: 25 MG, QHS

REACTIONS (7)
  - ANOREXIA [None]
  - CHOLELITHIASIS [None]
  - CHROMATURIA [None]
  - HYPERBILIRUBINAEMIA [None]
  - NAUSEA [None]
  - RASH [None]
  - SKIN DISCOLOURATION [None]
